FAERS Safety Report 8118287-0 (Version None)
Quarter: 2012Q1

REPORT INFORMATION
  Report Type: 
  Country: None (occurrence: None)
  Receive Date: 20120201
  Receipt Date: 20120123
  Transmission Date: 20120608
  Serious: Yes (Other)
  Sender: FDA-Public Use
  Company Number: AUR-APL-2011-05015

PATIENT
  Age: 74 Year
  Sex: Male
  Weight: 70 kg

DRUGS (15)
  1. RISEDRONATE SODIUM [Concomitant]
  2. RAMIPRIL [Suspect]
     Indication: PRODUCT USED FOR UNKNOWN INDICATION
     Dosage: ORAL
     Route: 048
  3. ACETAMINOPHEN [Concomitant]
  4. ASPIRIN [Concomitant]
  5. LEVOTHYROXINE SODIUM [Concomitant]
  6. INFLUENZA VIRUS (INFLUENZA VACCINE) [Concomitant]
  7. DILTIAZEM HYDROCHLORIDE [Concomitant]
  8. TRAMADOL HCL [Concomitant]
  9. HYDROXOCOBALAMIN [Concomitant]
  10. ALCLOMETASONE DIPROPIONATE [Concomitant]
  11. CETIRIZINE HCL [Concomitant]
  12. SIMVASTATIN [Concomitant]
  13. ISPAGHULA HUSK (PLANTAGO OVATA HUSK) [Concomitant]
  14. AMITRIPTYLINE HCL [Concomitant]
  15. FLUOROURACIL [Concomitant]

REACTIONS (1)
  - RESTLESSNESS [None]
